FAERS Safety Report 5750954-6 (Version None)
Quarter: 2008Q2

REPORT INFORMATION
  Report Type: 
  Country: None (occurrence: None)
  Receive Date: 20080528
  Receipt Date: 20080521
  Transmission Date: 20081010
  Serious: Yes (Disabling, Other)
  Sender: FDA-Public Use
  Company Number: US-MERCK-0706USA00853

PATIENT
  Age: 61 Year
  Sex: Female
  Weight: 51 kg

DRUGS (5)
  1. FOSAMAX [Suspect]
     Indication: OSTEOPENIA
     Route: 048
     Dates: start: 20020226, end: 20031101
  2. FOSAMAX [Suspect]
     Route: 048
     Dates: start: 20031114
  3. FOSAMAX [Suspect]
     Route: 048
     Dates: start: 20041213, end: 20060101
  4. FOSAMAX [Suspect]
     Route: 048
     Dates: start: 20020201
  5. HORMONES (UNSPECIFIED) [Concomitant]
     Route: 065
     Dates: start: 19700101, end: 20020212

REACTIONS (18)
  - ARTHRITIS [None]
  - CERUMEN IMPACTION [None]
  - DENTAL CARIES [None]
  - EPISTAXIS [None]
  - JAW DISORDER [None]
  - ORAL INFECTION [None]
  - OSTEONECROSIS [None]
  - PAIN [None]
  - PAIN IN JAW [None]
  - SWELLING [None]
  - THROMBOSIS [None]
  - TOOTH ABSCESS [None]
  - TOOTH EXTRACTION [None]
  - TOOTH FRACTURE [None]
  - TOOTH LOSS [None]
  - TOOTHACHE [None]
  - VARICOSE ULCERATION [None]
  - VARICOSE VEIN [None]
